FAERS Safety Report 19454757 (Version 1)
Quarter: 2021Q2

REPORT INFORMATION
  Report Type: Spontaneous
  Country: CA (occurrence: CA)
  Receive Date: 20210623
  Receipt Date: 20210623
  Transmission Date: 20210717
  Serious: Yes (Death, Other)
  Sender: FDA-Public Use
  Company Number: CA-ASTRAZENECA-2021A541308

PATIENT
  Sex: Female

DRUGS (1)
  1. FULVESTRANT. [Suspect]
     Active Substance: FULVESTRANT
     Dosage: UNKNOWN
     Route: 065

REACTIONS (1)
  - Death [Fatal]
